FAERS Safety Report 7320673-3 (Version None)
Quarter: 2011Q1

REPORT INFORMATION
  Report Type: 
  Country: None (occurrence: None)
  Receive Date: 20110228
  Receipt Date: 20110215
  Transmission Date: 20110831
  Serious: Yes (Other)
  Sender: FDA-Public Use
  Company Number: US-ROCHE-734366

PATIENT
  Sex: Female
  Weight: 113.4 kg

DRUGS (1)
  1. ACCUTANE [Suspect]
     Indication: ACNE
     Route: 065
     Dates: start: 19960101, end: 19960601

REACTIONS (13)
  - LIVER INJURY [None]
  - LARGE INTESTINAL ULCER [None]
  - IRRITABLE BOWEL SYNDROME [None]
  - INFLAMMATORY BOWEL DISEASE [None]
  - ANAL FISTULA [None]
  - HAEMORRHOIDS [None]
  - ARTHRITIS [None]
  - NAUSEA [None]
  - ABDOMINAL PAIN [None]
  - RECTAL HAEMORRHAGE [None]
  - ANAL ABSCESS [None]
  - ANAL ULCER [None]
  - COLITIS ULCERATIVE [None]
